FAERS Safety Report 16020506 (Version 3)
Quarter: 2019Q4

REPORT INFORMATION
  Report Type: Other
  Country: ES (occurrence: ES)
  Receive Date: 20190301
  Receipt Date: 20191121
  Transmission Date: 20200122
  Serious: Yes (Death, Hospitalization, Other)
  Sender: FDA-Public Use
  Company Number: ES-CELLTRION INC.-2018ES020551

PATIENT

DRUGS (14)
  1. SEPTRIN [Concomitant]
     Active Substance: SULFAMETHOXAZOLE\TRIMETHOPRIM
     Indication: INFECTION PROPHYLAXIS
     Dosage: UNK
     Route: 048
     Dates: start: 20180405
  2. ALLOPURINOL. [Concomitant]
     Active Substance: ALLOPURINOL
     Indication: PROPHYLAXIS
     Dosage: 300 MG, 1 DAY
     Route: 048
     Dates: start: 20180405
  3. NEULASTA [Concomitant]
     Active Substance: PEGFILGRASTIM
     Indication: INFECTION PROPHYLAXIS
     Dosage: UNK
     Dates: start: 20180405
  4. PREDNISONE. [Suspect]
     Active Substance: PREDNISONE
     Indication: DIFFUSE LARGE B-CELL LYMPHOMA
     Dosage: 100 MG, CYCLIC DAYS 1-5
     Route: 048
     Dates: start: 20180404, end: 20180408
  5. VINCRISTINE /00078802/ [Suspect]
     Active Substance: VINCRISTINE
     Indication: DIFFUSE LARGE B-CELL LYMPHOMA
     Dosage: 1.4 MG/M2, CYCLIC
     Route: 042
     Dates: start: 20180404, end: 20180404
  6. ACTOCORTIN /00028603/ [Concomitant]
     Active Substance: HYDROCORTISONE SODIUM PHOSPHATE
     Indication: PROPHYLAXIS OF NAUSEA AND VOMITING
     Dosage: 10 MG, (TOTAL) SINGLE
     Route: 042
     Dates: start: 20180404, end: 20180404
  7. RITUXIMAB (UNKNOWN) [Suspect]
     Active Substance: RITUXIMAB
     Indication: DIFFUSE LARGE B-CELL LYMPHOMA
     Dosage: 375 MG/M2, CYCLIC (DAY1)
     Route: 042
     Dates: start: 20180404, end: 20180404
  8. VINCRISTINE /00078802/ [Suspect]
     Active Substance: VINCRISTINE
     Dosage: 4 MG/M2, CYCLIC
     Route: 042
     Dates: start: 20180404, end: 20180404
  9. DOXORUBICIN HYDROCHLORIDE. [Suspect]
     Active Substance: DOXORUBICIN HYDROCHLORIDE
     Indication: DIFFUSE LARGE B-CELL LYMPHOMA
     Dosage: 50 MG/M2, CYCLIC DAY 1
     Route: 042
     Dates: start: 20180404, end: 20180404
  10. ONDASETRON /00955301/ [Concomitant]
     Active Substance: ONDANSETRON
     Indication: PROPHYLAXIS OF NAUSEA AND VOMITING
     Dosage: 24 MG, 3X/DAY
     Route: 042
     Dates: start: 20180404, end: 20180406
  11. ZOLPIDEM [Concomitant]
     Active Substance: ZOLPIDEM TARTRATE
     Indication: PROPHYLAXIS
     Dosage: 10 MG, 1X/DAY
     Route: 048
     Dates: start: 20180323
  12. CYCLOPHOSPHAMIDE. [Suspect]
     Active Substance: CYCLOPHOSPHAMIDE
     Indication: DIFFUSE LARGE B-CELL LYMPHOMA
     Dosage: 750 MG/M2, DAY 1
     Route: 042
     Dates: start: 20180404, end: 20180404
  13. CC-122 [Suspect]
     Active Substance: AVADOMIDE
     Indication: DIFFUSE LARGE B-CELL LYMPHOMA
     Dosage: 2 MG, CYCLIC (DAYS 1-5 AND 8-12 FOR 10/21 DAYS)
     Route: 048
     Dates: start: 20180404, end: 20180408
  14. ACTOCORTIN /00028603/ [Concomitant]
     Active Substance: HYDROCORTISONE SODIUM PHOSPHATE
     Indication: ERYTHEMA
     Dosage: UNK

REACTIONS (6)
  - Product use in unapproved indication [Unknown]
  - Neoplasm progression [Fatal]
  - Intestinal obstruction [Fatal]
  - Respiratory failure [Fatal]
  - Pneumonia [Not Recovered/Not Resolved]
  - Off label use [Unknown]

NARRATIVE: CASE EVENT DATE: 20180404
